FAERS Safety Report 23433307 (Version 3)
Quarter: 2024Q4

REPORT INFORMATION
  Report Type: Spontaneous
  Country: US (occurrence: US)
  Receive Date: 20240123
  Receipt Date: 20241121
  Transmission Date: 20250115
  Serious: No
  Sender: PFIZER
  Company Number: US-PFIZER INC-202400019603

PATIENT
  Age: 75 Year
  Sex: Female
  Weight: 58.51 kg

DRUGS (2)
  1. IBRANCE [Suspect]
     Active Substance: PALBOCICLIB
     Indication: Bone cancer
     Dosage: 125 MG
  2. IBRANCE [Suspect]
     Active Substance: PALBOCICLIB
     Indication: Breast cancer female
     Dosage: (3X7, TAKE 1 TABLET BY MOUTH DAILY FOR 21 DAYS. EVERY 28 DAY CYCLE)
     Route: 048

REACTIONS (1)
  - White blood cell count decreased [Unknown]
